FAERS Safety Report 19505149 (Version 2)
Quarter: 2021Q3

REPORT INFORMATION
  Report Type: Spontaneous
  Country: DE (occurrence: DE)
  Receive Date: 20210707
  Receipt Date: 20210720
  Transmission Date: 20211014
  Serious: Yes (Other)
  Sender: FDA-Public Use
  Company Number: DE-ROCHE-2863444

PATIENT
  Sex: Male

DRUGS (7)
  1. XOLAIR [Suspect]
     Active Substance: OMALIZUMAB
     Indication: ASPIRIN-EXACERBATED RESPIRATORY DISEASE
     Route: 058
     Dates: start: 20151028, end: 2016
  2. XOLAIR [Suspect]
     Active Substance: OMALIZUMAB
     Route: 058
  3. XOLAIR [Suspect]
     Active Substance: OMALIZUMAB
     Route: 058
     Dates: start: 20210518
  4. PULMICORT TURBUHALER [Concomitant]
     Active Substance: BUDESONIDE
     Indication: PRODUCT USED FOR UNKNOWN INDICATION
  5. CORTISONE [Concomitant]
     Active Substance: CORTISONE
     Indication: PRODUCT USED FOR UNKNOWN INDICATION
     Route: 065
  6. XOLAIR [Suspect]
     Active Substance: OMALIZUMAB
     Indication: NASAL POLYPS
     Route: 058
     Dates: start: 20160314
  7. NASONEX [Concomitant]
     Active Substance: MOMETASONE FUROATE
     Indication: PRODUCT USED FOR UNKNOWN INDICATION
     Route: 065

REACTIONS (12)
  - Infection [Unknown]
  - Ageusia [Recovered/Resolved]
  - Hyposmia [Recovered/Resolved]
  - Sinusitis [Unknown]
  - Conjunctivitis allergic [Unknown]
  - Nasal congestion [Recovered/Resolved]
  - Sinonasal obstruction [Recovered/Resolved]
  - Oral allergy syndrome [Unknown]
  - Anosmia [Recovered/Resolved]
  - Asthma [Unknown]
  - Respiratory tract inflammation [Unknown]
  - Off label use [Unknown]

NARRATIVE: CASE EVENT DATE: 2016
